FAERS Safety Report 17943134 (Version 1)
Quarter: 2020Q2

REPORT INFORMATION
  Report Type: Report from Study
  Country: None (occurrence: US)
  Receive Date: 20200625
  Receipt Date: 20200625
  Transmission Date: 20200714
  Serious: Yes (Hospitalization, Other)
  Sender: FDA-Public Use
  Company Number: US-ABBVIE-20K-163-3455464-00

PATIENT
  Sex: Female

DRUGS (3)
  1. VENCLEXTA [Suspect]
     Active Substance: VENETOCLAX
     Indication: MALIGNANT LYMPHOID NEOPLASM
  2. VENCLEXTA [Suspect]
     Active Substance: VENETOCLAX
     Indication: UTERINE CANCER
  3. VENCLEXTA [Suspect]
     Active Substance: VENETOCLAX
     Indication: HAEMATOPOIETIC NEOPLASM
     Route: 048
     Dates: start: 20200520, end: 2020

REACTIONS (4)
  - Uterine cancer [Unknown]
  - Malignant lymphoid neoplasm [Unknown]
  - Infection [Not Recovered/Not Resolved]
  - Off label use [Unknown]

NARRATIVE: CASE EVENT DATE: 2020
